FAERS Safety Report 12608663 (Version 2)
Quarter: 2016Q3

REPORT INFORMATION
  Report Type: Spontaneous
  Country: US (occurrence: US)
  Receive Date: 20160729
  Receipt Date: 20160815
  Transmission Date: 20161109
  Serious: Yes (Other)
  Sender: FDA-Public Use
  Company Number: US-TARO-2016TAR00647

PATIENT
  Sex: Male
  Weight: 113.38 kg

DRUGS (14)
  1. AMILORIDE [Concomitant]
     Active Substance: AMILORIDE
     Dosage: 5 UNK, UNK
  2. MORPHINE SULFATE IR [Concomitant]
     Active Substance: MORPHINE SULFATE
     Dosage: UNK
     Dates: start: 20160408
  3. KEVEYIS [Suspect]
     Active Substance: DICHLORPHENAMIDE
     Indication: FAMILIAL PERIODIC PARALYSIS
     Dosage: 50 MG, 2X/DAY
     Route: 048
     Dates: start: 2016
  4. DERILLIUM [Concomitant]
     Dosage: 100 UNK, UNK
  5. KEVEYIS [Suspect]
     Active Substance: DICHLORPHENAMIDE
     Dosage: 0.5 TABLETS, 2X/DAY
     Route: 048
     Dates: start: 20160325
  6. TRIAMTERENE. [Concomitant]
     Active Substance: TRIAMTERENE
  7. KLOR-CON ER [Concomitant]
  8. CLARITIN [Concomitant]
     Active Substance: LORATADINE
     Dosage: UNK, AS NEEDED
  9. DULCOLAX NOS [Concomitant]
     Active Substance: BISACODYL OR DOCUSATE SODIUM
  10. POTASSIUM CHLORIDE. [Concomitant]
     Active Substance: POTASSIUM CHLORIDE
     Dosage: 20 MEQ, UNK
  11. PRAVASTATIN. [Concomitant]
     Active Substance: PRAVASTATIN
  12. ZOLPIDEM [Concomitant]
     Active Substance: ZOLPIDEM\ZOLPIDEM TARTRATE
  13. OXYCODONE [Concomitant]
     Active Substance: OXYCODONE
  14. HYDROCODONE [Concomitant]
     Active Substance: HYDROCODONE
     Dosage: 4 MG, 6X/DAY

REACTIONS (1)
  - Thrombosis [Unknown]

NARRATIVE: CASE EVENT DATE: 2016
